FAERS Safety Report 6232696-6 (Version None)
Quarter: 2009Q2

REPORT INFORMATION
  Report Type: 
  Country: None (occurrence: None)
  Receive Date: 20090617
  Receipt Date: 20090612
  Transmission Date: 20091009
  Serious: Yes (Hospitalization, Disabling)
  Sender: FDA-Public Use
  Company Number: US-ASTRAZENECA-2009UW15063

PATIENT
  Age: 94 Year
  Sex: Male

DRUGS (6)
  1. ZESTRIL [Suspect]
     Indication: HYPERTENSION
     Route: 048
     Dates: start: 20060507
  2. COREG [Suspect]
     Indication: HYPERTENSION
     Route: 048
     Dates: start: 20090327
  3. RIVAROXABAN/WARFARIN CODE NOT BROKEN [Suspect]
     Indication: PROPHYLAXIS
     Route: 048
     Dates: start: 20090324, end: 20090519
  4. RIVAROXABAN/WARFARIN CODE NOT BROKEN [Suspect]
     Indication: THROMBOSIS PROPHYLAXIS
     Route: 048
     Dates: start: 20090324, end: 20090519
  5. RIVAROXABAN/WARFARIN CODE NOT BROKEN [Suspect]
     Route: 048
     Dates: start: 20090522, end: 20090525
  6. RIVAROXABAN/WARFARIN CODE NOT BROKEN [Suspect]
     Route: 048
     Dates: start: 20090522, end: 20090525

REACTIONS (2)
  - MOUTH HAEMORRHAGE [None]
  - SYNCOPE [None]
